FAERS Safety Report 24578233 (Version 7)
Quarter: 2025Q4

REPORT INFORMATION
  Report Type: Report from Study
  Country: US (occurrence: None)
  Receive Date: 20241104
  Receipt Date: 20251024
  Transmission Date: 20260117
  Serious: Yes (Hospitalization, Other)
  Sender: UCB
  Company Number: US-UCBSA-2024055486

PATIENT
  Age: 26 Year
  Weight: 129.3 kg

DRUGS (4)
  1. FENFLURAMINE [Suspect]
     Active Substance: FENFLURAMINE
     Indication: Lennox-Gastaut syndrome
     Dosage: 5.9 MILLILITER, 2X/DAY (BID)
  2. FENFLURAMINE [Suspect]
     Active Substance: FENFLURAMINE
     Dosage: 5.9 MILLILITER, 2X/DAY (BID)
  3. FENFLURAMINE [Suspect]
     Active Substance: FENFLURAMINE
     Dosage: 2.2 MG/KG/DAY
  4. FENFLURAMINE [Suspect]
     Active Substance: FENFLURAMINE
     Dosage: 5.9 MILLIGRAM PER DAY

REACTIONS (8)
  - Abdominal pain [Not Recovered/Not Resolved]
  - Cholecystitis [Not Recovered/Not Resolved]
  - Oxygen saturation decreased [Not Recovered/Not Resolved]
  - Pulmonary oedema [Not Recovered/Not Resolved]
  - Electrocardiogram abnormal [Unknown]
  - Mitral valve thickening [Unknown]
  - Pericardial effusion [Unknown]
  - Left ventricular hypertrophy [Unknown]
